FAERS Safety Report 9318243 (Version 1)
Quarter: 2013Q2

REPORT INFORMATION
  Report Type: Spontaneous
  Country: US (occurrence: US)
  Receive Date: 20130530
  Receipt Date: 20130530
  Transmission Date: 20140414
  Serious: No
  Sender: FDA-Public Use
  Company Number: US-GLAXOSMITHKLINE-A1009634A

PATIENT
  Age: 4 Year
  Sex: Female

DRUGS (5)
  1. VENTOLIN [Suspect]
     Indication: ASTHMA
     Dosage: 2PUFF SEE DOSAGE TEXT
     Route: 055
     Dates: start: 201212
  2. FLOVENT [Suspect]
     Indication: ASTHMA
     Route: 055
     Dates: start: 201205
  3. SINGULAIR [Concomitant]
  4. FLOVENT [Concomitant]
  5. NASONEX [Concomitant]

REACTIONS (4)
  - Asthma [Not Recovered/Not Resolved]
  - Cough [Not Recovered/Not Resolved]
  - Malaise [Unknown]
  - Product quality issue [Unknown]
